FAERS Safety Report 4448261-7 (Version None)
Quarter: 2004Q3

REPORT INFORMATION
  Report Type: 
  Country: None (occurrence: None)
  Receive Date: 20040910
  Receipt Date: 20040823
  Transmission Date: 20050211
  Serious: No
  Sender: FDA-Public Use
  Company Number: CART-10367

PATIENT
  Age: 44 Year
  Sex: Female

DRUGS (1)
  1. CARTICEL [Suspect]
     Indication: BONE DISORDER
     Dosage: 1 NA ONCE IS
     Dates: start: 19990305, end: 19990305

REACTIONS (5)
  - ARTHRALGIA [None]
  - BONE DISORDER [None]
  - CHONDROMALACIA [None]
  - JOINT CREPITATION [None]
  - JOINT SWELLING [None]
